FAERS Safety Report 7650934-X (Version None)
Quarter: 2011Q3

REPORT INFORMATION
  Report Type: 
  Country: None (occurrence: None)
  Receive Date: 20110802
  Receipt Date: 20110726
  Transmission Date: 20111222
  Serious: Yes (Hospitalization, Other)
  Sender: FDA-Public Use
  Company Number: US-BAYER-2011-065282

PATIENT
  Age: 21 Year
  Sex: Female
  Weight: 68.934 kg

DRUGS (1)
  1. BEYAZ [Suspect]
     Indication: CONTRACEPTION
     Dosage: UNK
     Route: 048
     Dates: start: 20110701, end: 20110701

REACTIONS (6)
  - BLOOD POTASSIUM DECREASED [None]
  - GALLBLADDER ENLARGEMENT [None]
  - PAIN [None]
  - CHEST PAIN [None]
  - DYSPNOEA [None]
  - CHOLELITHIASIS [None]
